FAERS Safety Report 4387973-0 (Version None)
Quarter: 2004Q2

REPORT INFORMATION
  Report Type: 
  Country: None (occurrence: None)
  Receive Date: 20040607
  Receipt Date: 20030630
  Transmission Date: 20050107
  Serious: Yes (Other)
  Sender: FDA-Public Use
  Company Number: 333938

PATIENT
  Sex: Female

DRUGS (1)
  1. ACCUTANE [Suspect]
     Indication: ACNE
     Dosage: 40 MG 1 PER 1 DAY ORAL
     Route: 048
     Dates: start: 20021015, end: 20030313

REACTIONS (5)
  - ANXIETY [None]
  - CRYING [None]
  - DEPRESSION [None]
  - INSOMNIA [None]
  - MOOD ALTERED [None]
